FAERS Safety Report 25929737 (Version 1)
Quarter: 2025Q4

REPORT INFORMATION
  Report Type: Spontaneous
  Country: US (occurrence: US)
  Receive Date: 20251016
  Receipt Date: 20251016
  Transmission Date: 20260118
  Serious: Yes (Other)
  Sender: Kenvue
  Company Number: US-KENVUE-20251002722

PATIENT
  Age: 84 Year
  Sex: Female

DRUGS (8)
  1. TYLENOL COLD PLUS FLU MULTI-SYMPTOM LIQUID GELS DAY [Suspect]
     Active Substance: ACETAMINOPHEN\DEXTROMETHORPHAN HYDROBROMIDE
     Indication: Headache
     Dosage: 2 DOSAGE FORM (GELCAPS), 3-4 TIMES DAILY
     Route: 048
     Dates: start: 20251004
  2. TYLENOL COLD PLUS FLU MULTI-SYMPTOM LIQUID GELS DAY [Suspect]
     Active Substance: ACETAMINOPHEN\DEXTROMETHORPHAN HYDROBROMIDE
     Indication: Oropharyngeal pain
  3. TYLENOL COLD PLUS FLU MULTI-SYMPTOM LIQUID GELS DAY [Suspect]
     Active Substance: ACETAMINOPHEN\DEXTROMETHORPHAN HYDROBROMIDE
     Indication: Cough
  4. TYLENOL COLD PLUS FLU MULTI-SYMPTOM LIQUID GELS DAY [Suspect]
     Active Substance: ACETAMINOPHEN\DEXTROMETHORPHAN HYDROBROMIDE
     Indication: Upper-airway cough syndrome
  5. ACETAMINOPHEN\PSEUDOEPHEDRINE HYDROCHLORIDE [Concomitant]
     Active Substance: ACETAMINOPHEN\PSEUDOEPHEDRINE HYDROCHLORIDE
     Indication: Headache
     Dosage: 2 DOSAGE FORM (CAPLET), 1-4 TIMES IN A DAY WHEN NEEDED
     Route: 048
     Dates: start: 20250818, end: 20251005
  6. ACETAMINOPHEN\PSEUDOEPHEDRINE HYDROCHLORIDE [Concomitant]
     Active Substance: ACETAMINOPHEN\PSEUDOEPHEDRINE HYDROCHLORIDE
     Indication: Oropharyngeal pain
  7. ACETAMINOPHEN\PSEUDOEPHEDRINE HYDROCHLORIDE [Concomitant]
     Active Substance: ACETAMINOPHEN\PSEUDOEPHEDRINE HYDROCHLORIDE
     Indication: Cough
  8. ACETAMINOPHEN\PSEUDOEPHEDRINE HYDROCHLORIDE [Concomitant]
     Active Substance: ACETAMINOPHEN\PSEUDOEPHEDRINE HYDROCHLORIDE
     Indication: Upper-airway cough syndrome

REACTIONS (3)
  - Foreign body in throat [Recovering/Resolving]
  - Product use in unapproved indication [Unknown]
  - Product complaint [Unknown]

NARRATIVE: CASE EVENT DATE: 20251004
